FAERS Safety Report 9015872 (Version 1)
Quarter: 2013Q1

REPORT INFORMATION
  Report Type: Spontaneous
  Country: US (occurrence: US)
  Receive Date: 20130116
  Receipt Date: 20130116
  Transmission Date: 20140127
  Serious: Yes (Other)
  Sender: FDA-Public Use
  Company Number: US-PFIZER INC-2013018642

PATIENT
  Age: 57 Year
  Sex: Male
  Weight: 109 kg

DRUGS (4)
  1. LYRICA [Suspect]
     Indication: NEURALGIA
     Dosage: 75MG IN MORNING +150MG IN NIGHT
     Route: 048
     Dates: start: 2011, end: 2011
  2. LYRICA [Suspect]
     Dosage: 75MG IN MORNING + 150MG IN NIGHT
     Route: 048
     Dates: start: 201211, end: 201301
  3. PERCOCET [Concomitant]
     Indication: PAIN
     Dosage: UNK
  4. MORPHINE [Concomitant]
     Indication: PAIN
     Dosage: UNK

REACTIONS (10)
  - Loss of consciousness [Not Recovered/Not Resolved]
  - Testicular pain [Not Recovered/Not Resolved]
  - Memory impairment [Not Recovered/Not Resolved]
  - Impaired driving ability [Not Recovered/Not Resolved]
  - Somnolence [Not Recovered/Not Resolved]
  - Disturbance in attention [Not Recovered/Not Resolved]
  - Fall [Not Recovered/Not Resolved]
  - Hyperhidrosis [Not Recovered/Not Resolved]
  - Feeling hot [Not Recovered/Not Resolved]
  - Dizziness [Not Recovered/Not Resolved]
